FAERS Safety Report 4699058-4 (Version None)
Quarter: 2005Q2

REPORT INFORMATION
  Report Type: 
  Country: None (occurrence: None)
  Receive Date: 20050622
  Receipt Date: 20050622
  Transmission Date: 20051028
  Serious: Yes (Disabling)
  Sender: FDA-Public Use
  Company Number: None

PATIENT
  Age: 60 Year
  Sex: Female
  Weight: 68.0396 kg

DRUGS (1)
  1. BEXTRA [Suspect]
     Indication: BACK PAIN
     Dosage: 1 TABLET PER DAY
     Dates: start: 20040920, end: 20040929

REACTIONS (11)
  - AURICULAR SWELLING [None]
  - BLISTER [None]
  - EYE SWELLING [None]
  - NASAL OEDEMA [None]
  - OEDEMA MOUTH [None]
  - PRURITUS [None]
  - RASH ERYTHEMATOUS [None]
  - RASH GENERALISED [None]
  - SKIN BURNING SENSATION [None]
  - SKIN EXFOLIATION [None]
  - URTICARIA [None]
